FAERS Safety Report 23102143 (Version 2)
Quarter: 2023Q4

REPORT INFORMATION
  Report Type: Spontaneous
  Country: US (occurrence: US)
  Receive Date: 20231025
  Receipt Date: 20231116
  Transmission Date: 20240109
  Serious: Yes (Hospitalization)
  Sender: FDA-Public Use
  Company Number: US-ABBVIE-5462935

PATIENT
  Age: 16 Year
  Sex: Male

DRUGS (4)
  1. SYNTHROID [Suspect]
     Active Substance: LEVOTHYROXINE SODIUM
     Indication: Product used for unknown indication
     Dosage: FORM STRENGTH: 112 MICROGRAM
     Route: 048
     Dates: start: 2005
  2. VRAYLAR [Concomitant]
     Active Substance: CARIPRAZINE
     Indication: Depression
     Dosage: FORM STRENGTH: 4.5 MILLIGRAM, 1 CAP AT NIGHT
     Route: 048
     Dates: start: 202306
  3. VRAYLAR [Concomitant]
     Active Substance: CARIPRAZINE
     Indication: Depression
     Dosage: FORM STRENGTH: 4.5 MILLIGRAM, 1 CAP AT NIGHT?STOP DATE TEXT: 1/2 TO 2 YEARS AGO
     Route: 048
     Dates: start: 2011, end: 2021
  4. VIBERZI [Concomitant]
     Active Substance: ELUXADOLINE
     Indication: Product used for unknown indication
     Route: 048
     Dates: start: 2020

REACTIONS (3)
  - Road traffic accident [Recovered/Resolved with Sequelae]
  - Back pain [Not Recovered/Not Resolved]
  - Neck pain [Not Recovered/Not Resolved]

NARRATIVE: CASE EVENT DATE: 20051231
